FAERS Safety Report 7928949-3 (Version None)
Quarter: 2011Q4

REPORT INFORMATION
  Report Type: 
  Country: None (occurrence: None)
  Receive Date: 20111118
  Receipt Date: 20111116
  Transmission Date: 20120403
  Serious: Yes (Hospitalization)
  Sender: FDA-Public Use
  Company Number: IT-MERCK-1111ITA00026

PATIENT
  Age: 69 Year
  Sex: Male

DRUGS (4)
  1. VASOTEC [Concomitant]
     Route: 048
     Dates: start: 20051020
  2. SIMVASTATIN [Concomitant]
     Route: 048
     Dates: start: 20081016
  3. ROSIGLITAZONE MALEATE [Concomitant]
     Route: 048
     Dates: start: 20061016
  4. JANUVIA [Suspect]
     Indication: TYPE 2 DIABETES MELLITUS
     Route: 048
     Dates: start: 20091113

REACTIONS (1)
  - INTESTINAL ADENOCARCINOMA [None]
